FAERS Safety Report 8507195-9 (Version None)
Quarter: 2012Q3

REPORT INFORMATION
  Report Type: 
  Country: None (occurrence: None)
  Receive Date: 20120712
  Receipt Date: 20120703
  Transmission Date: 20120928
  Serious: Yes (Hospitalization, Other)
  Sender: FDA-Public Use
  Company Number: US-CELGENEUS-163-21880-12063137

PATIENT
  Sex: Male

DRUGS (5)
  1. VELCADE [Concomitant]
     Route: 065
  2. REVLIMID [Suspect]
     Indication: MULTIPLE MYELOMA
     Dosage: 25 MILLIGRAM
     Route: 048
     Dates: start: 20120101
  3. DECADRON [Concomitant]
     Route: 065
  4. REVLIMID [Suspect]
     Route: 048
     Dates: start: 20120201
  5. VELCADE [Concomitant]
     Route: 065
     Dates: start: 20120607

REACTIONS (4)
  - HYPOXIA [None]
  - VENTRICULAR TACHYCARDIA [None]
  - SYNCOPE [None]
  - NASOPHARYNGITIS [None]
